FAERS Safety Report 8087268-8 (Version None)
Quarter: 2012Q1

REPORT INFORMATION
  Report Type: 
  Country: None (occurrence: None)
  Receive Date: 20120128
  Receipt Date: 20110516
  Transmission Date: 20120608
  Serious: No
  Sender: FDA-Public Use
  Company Number: US-ABBOTT-11P-163-0725904-00

PATIENT
  Sex: Female
  Weight: 133.48 kg

DRUGS (8)
  1. CALCIUM +VIT D [Concomitant]
     Indication: PRODUCT USED FOR UNKNOWN INDICATION
  2. HUMIRA [Suspect]
     Indication: RHEUMATOID ARTHRITIS
     Route: 058
     Dates: start: 20110404
  3. ALTRAM [Concomitant]
     Indication: PAIN
  4. LYRICA [Concomitant]
     Indication: FIBROMYALGIA
  5. METHOTREXATE [Concomitant]
     Indication: PRODUCT USED FOR UNKNOWN INDICATION
     Route: 048
  6. CELEBREX [Concomitant]
     Indication: PRODUCT USED FOR UNKNOWN INDICATION
  7. CYMBALTA [Concomitant]
     Indication: FIBROMYALGIA
  8. IRON [Concomitant]
     Indication: ANAEMIA

REACTIONS (5)
  - IMPAIRED HEALING [None]
  - WEIGHT INCREASED [None]
  - INJECTION SITE PAIN [None]
  - HOT FLUSH [None]
  - HYPERHIDROSIS [None]
